FAERS Safety Report 5202688-4 (Version None)
Quarter: 2007Q1

REPORT INFORMATION
  Report Type: 
  Country: None (occurrence: None)
  Receive Date: 20070109
  Receipt Date: 20061229
  Transmission Date: 20070707
  Serious: Yes (Other)
  Sender: FDA-Public Use
  Company Number: US-PFIZER INC-2007000438

PATIENT
  Sex: Male
  Weight: 61.2 kg

DRUGS (8)
  1. CHANTIX [Suspect]
     Indication: EX-SMOKER
     Dates: start: 20061103, end: 20060101
  2. VITAMIN CAP [Concomitant]
  3. METOPROLOL SUCCINATE [Concomitant]
  4. ZOCOR [Concomitant]
  5. PLAVIX [Concomitant]
  6. MIRTAZAPINE [Concomitant]
  7. DOXAZOSIN MESYLATE [Concomitant]
  8. SODIUM CHLORIDE [Concomitant]
     Route: 045

REACTIONS (5)
  - BLOOD GLUCOSE INCREASED [None]
  - CONSTIPATION [None]
  - DIABETES MELLITUS [None]
  - FLATULENCE [None]
  - INSOMNIA [None]
